FAERS Safety Report 5209381-2 (Version None)
Quarter: 2007Q1

REPORT INFORMATION
  Report Type: 
  Country: None (occurrence: None)
  Receive Date: 20070111
  Receipt Date: 20061227
  Transmission Date: 20070707
  Serious: Yes (Hospitalization)
  Sender: FDA-Public Use
  Company Number: 2006BI017711

PATIENT
  Age: 59 Year
  Sex: Female

DRUGS (1)
  1. NATALIZUMAB [Suspect]
     Indication: MULTIPLE SCLEROSIS
     Dosage: 300 MG;QM;IV
     Route: 042
     Dates: start: 20061017

REACTIONS (5)
  - BLOOD CALCIUM INCREASED [None]
  - DEHYDRATION [None]
  - DELIRIUM [None]
  - NEUROGENIC BLADDER [None]
  - URINARY TRACT INFECTION [None]
